FAERS Safety Report 23779781 (Version 1)
Quarter: 2024Q2

REPORT INFORMATION
  Report Type: Spontaneous
  Country: CN (occurrence: None)
  Receive Date: 20240424
  Receipt Date: 20240424
  Transmission Date: 20240716
  Serious: Yes (Other)
  Sender: FDA-Public Use
  Company Number: 2024A094447

PATIENT
  Age: 90 Year
  Sex: Male

DRUGS (3)
  1. BUDESONIDE\FORMOTEROL\GLYCOPYRRONIUM [Suspect]
     Active Substance: BUDESONIDE\FORMOTEROL\GLYCOPYRRONIUM
     Indication: Antiinflammatory therapy
     Route: 055
     Dates: start: 20240318
  2. BUDESONIDE [Suspect]
     Active Substance: BUDESONIDE
     Indication: Antiinflammatory therapy
     Route: 055
     Dates: start: 20240319, end: 20240327
  3. BUDESONIDE [Suspect]
     Active Substance: BUDESONIDE
     Indication: Antiinflammatory therapy
     Route: 055
     Dates: start: 20240319, end: 20240319

REACTIONS (1)
  - Leukoplakia oral [Recovering/Resolving]

NARRATIVE: CASE EVENT DATE: 20240324
